FAERS Safety Report 7600814-0 (Version None)
Quarter: 2011Q2

REPORT INFORMATION
  Report Type: 
  Country: None (occurrence: None)
  Receive Date: 20110627
  Receipt Date: 20110407
  Transmission Date: 20111010
  Serious: Yes (Other)
  Sender: FDA-Public Use
  Company Number: VISP-PR-1104L-0126

PATIENT

DRUGS (1)
  1. VISIPAQUE [Suspect]
     Indication: PRODUCT USED FOR UNKNOWN INDICATION
     Dosage: 125 ML, SINGLE DOSE, INTRA-ARTERIAL
     Route: 013

REACTIONS (2)
  - RENAL FAILURE ACUTE [None]
  - BLOOD CREATININE INCREASED [None]
